FAERS Safety Report 8037028-9 (Version None)
Quarter: 2012Q1

REPORT INFORMATION
  Report Type: 
  Country: None (occurrence: None)
  Receive Date: 20120111
  Receipt Date: 20111017
  Transmission Date: 20120608
  Serious: Yes (Other)
  Sender: FDA-Public Use
  Company Number: DE-ASTRAZENECA-2011SE62653

PATIENT
  Sex: Male

DRUGS (2)
  1. MIRTAZAPINE [Concomitant]
     Route: 048
  2. SEROQUEL XR [Suspect]
     Indication: AUTISM SPECTRUM DISORDER
     Route: 048

REACTIONS (1)
  - URINARY RETENTION [None]
